FAERS Safety Report 16027987 (Version 1)
Quarter: 2019Q1

REPORT INFORMATION
  Report Type: Spontaneous
  Country: US (occurrence: US)
  Receive Date: 20190304
  Receipt Date: 20190304
  Transmission Date: 20190418
  Serious: No
  Sender: FDA-Public Use
  Company Number: US-LUPIN PHARMACEUTICALS INC.-2019-00812

PATIENT
  Sex: Male
  Weight: 77.1 kg

DRUGS (1)
  1. NIACIN EXTENDED RELEASE TABLET [Suspect]
     Active Substance: NIACIN
     Indication: BLOOD CHOLESTEROL ABNORMAL
     Dosage: 2000 MILLIGRAM, QD
     Route: 048

REACTIONS (2)
  - Dyspepsia [Unknown]
  - Product substitution issue [Unknown]
